FAERS Safety Report 23657623 (Version 1)
Quarter: 2024Q1

REPORT INFORMATION
  Report Type: Spontaneous
  Country: FR (occurrence: FR)
  Receive Date: 20240321
  Receipt Date: 20240321
  Transmission Date: 20240410
  Serious: Yes (Hospitalization)
  Sender: FDA-Public Use
  Company Number: None

PATIENT

DRUGS (9)
  1. ONCASPAR [Suspect]
     Active Substance: PEGASPARGASE
     Indication: T-cell type acute leukaemia
     Dosage: 1 DF TOTAL
     Route: 042
     Dates: start: 20230728, end: 20230728
  2. ONCASPAR [Suspect]
     Active Substance: PEGASPARGASE
     Dosage: 1 DF TOTAL
     Route: 042
     Dates: start: 20231019, end: 20231019
  3. METHOTREXATE (METHOTREXATE SODIUM) [Suspect]
     Active Substance: METHOTREXATE SODIUM
     Indication: T-cell type acute leukaemia
     Dosage: 1 DF (STRENGTH 5G/50ML)
     Route: 065
     Dates: start: 20230725, end: 20230725
  4. METHOTREXATE (METHOTREXATE SODIUM) [Suspect]
     Active Substance: METHOTREXATE SODIUM
     Dosage: 1 DF TOTAL (STRENGTH 5G/50ML)
     Route: 065
     Dates: start: 20230801, end: 20230801
  5. METHOTREXATE (METHOTREXATE SODIUM) [Suspect]
     Active Substance: METHOTREXATE SODIUM
     Dosage: 1 DF TOTAL (STRENGTH 5G/50ML)
     Route: 065
     Dates: start: 20230808, end: 20230808
  6. METHOTREXATE (METHOTREXATE SODIUM) [Suspect]
     Active Substance: METHOTREXATE SODIUM
     Dosage: 1 DF TOTAL (STRENGTH 5G/50ML)
     Route: 065
     Dates: start: 20231026, end: 20231026
  7. DASATINIB [Suspect]
     Active Substance: DASATINIB
     Indication: T-cell type acute leukaemia
     Dosage: 1 DF TOTAL
     Route: 065
     Dates: end: 20231102
  8. ONDANSETRON [Concomitant]
     Active Substance: ONDANSETRON
     Indication: Prophylaxis of nausea and vomiting
     Dosage: 1 TABLET OF 8MG EVERY 12 HOURS IF NAUSEOUS
     Route: 065
  9. PURINETHOL [Concomitant]
     Active Substance: MERCAPTOPURINE
     Indication: T-cell type acute leukaemia
     Dosage: 1 DF (TABLET OF 50MG) DAILY
     Route: 065

REACTIONS (4)
  - Drug interaction [Recovered/Resolved]
  - Acute kidney injury [Recovered/Resolved]
  - Overdose [Recovered/Resolved]
  - Incorrect disposal of product [Recovered/Resolved]

NARRATIVE: CASE EVENT DATE: 20231028
